FAERS Safety Report 9305837 (Version 1)
Quarter: 2013Q2

REPORT INFORMATION
  Report Type: Spontaneous
  Country: US (occurrence: None)
  Receive Date: 20130522
  Receipt Date: 20130522
  Transmission Date: 20140414
  Serious: Yes (Other)
  Sender: FDA-Public Use
  Company Number: None

PATIENT
  Age: 44 Year
  Sex: Female
  Weight: 52.16 kg

DRUGS (1)
  1. ORTHOTRICYCLEN [Suspect]
     Indication: CONTRACEPTION
     Dosage: ONE PILL DAILY
     Dates: start: 2008, end: 2011

REACTIONS (1)
  - Deep vein thrombosis [None]
